FAERS Safety Report 18821357 (Version 1)
Quarter: 2021Q1

REPORT INFORMATION
  Report Type: Spontaneous
  Country: JP (occurrence: JP)
  Receive Date: 20210201
  Receipt Date: 20210201
  Transmission Date: 20210419
  Serious: Yes (Other)
  Sender: FDA-Public Use
  Company Number: JP-PFIZER INC-2021068245

PATIENT
  Sex: Female

DRUGS (1)
  1. XELJANZ [Suspect]
     Active Substance: TOFACITINIB CITRATE
     Indication: CARPAL TUNNEL SYNDROME
     Dosage: 5 MG, 2X/DAY
     Route: 048

REACTIONS (10)
  - Off label use [Unknown]
  - Palpitations [Unknown]
  - Intentional product misuse [Unknown]
  - C-reactive protein increased [Unknown]
  - Pain [Unknown]
  - Arrhythmia [Unknown]
  - Tachycardia [Unknown]
  - Feeling abnormal [Unknown]
  - Decreased appetite [Unknown]
  - Matrix metalloproteinase-3 increased [Unknown]
